FAERS Safety Report 9193651 (Version 1)
Quarter: 2013Q1

REPORT INFORMATION
  Report Type: Spontaneous
  Country: GB (occurrence: GB)
  Receive Date: 20130327
  Receipt Date: 20130327
  Transmission Date: 20140127
  Serious: Yes (Hospitalization)
  Sender: FDA-Public Use
  Company Number: GB-GLAXOSMITHKLINE-B0876326A

PATIENT
  Age: 48 Year
  Sex: Female
  Weight: 53.97 kg

DRUGS (2)
  1. REQUIP [Suspect]
     Indication: PARKINSON^S DISEASE
     Route: 048
     Dates: start: 2004
  2. REQUIP XL [Suspect]
     Indication: PARKINSON^S DISEASE
     Route: 048

REACTIONS (3)
  - Pathological gambling [Recovered/Resolved]
  - Personality change [Unknown]
  - Confusional state [Unknown]
